FAERS Safety Report 4744473-3 (Version None)
Quarter: 2005Q3

REPORT INFORMATION
  Report Type: 
  Country: None (occurrence: None)
  Receive Date: 20050809
  Receipt Date: 20050608
  Transmission Date: 20060218
  Serious: Yes (Other)
  Sender: FDA-Public Use
  Company Number: 2005091058

PATIENT
  Age: 52 Year
  Sex: Female

DRUGS (4)
  1. DETROL LA [Suspect]
     Indication: STRESS INCONTINENCE
     Dosage: 4 MG (4 MG, 1 IN 1 D
     Dates: start: 20050401
  2. ALLERGY MEDICATION (ALLERGY MEDICATION) [Concomitant]
  3. ANTIBIOTICS (ANTIBIOTICS) [Concomitant]
  4. COUGH AND COLD PREPARATIONS (COUGH AND COLD PREPARATIONS) [Concomitant]

REACTIONS (3)
  - COLONIC POLYP [None]
  - COUGH [None]
  - MUSCLE STRAIN [None]
